FAERS Safety Report 5182690-1 (Version None)
Quarter: 2006Q4

REPORT INFORMATION
  Report Type: 
  Country: None (occurrence: None)
  Receive Date: 20061211
  Receipt Date: 20061201
  Transmission Date: 20070319
  Serious: Yes (Death, Hospitalization, Other)
  Sender: FDA-Public Use
  Company Number: 090-20785-06120239

PATIENT
  Age: 69 Year
  Sex: Female

DRUGS (12)
  1. THALIDOMIDE [Suspect]
     Indication: MULTIPLE MYELOMA
     Dosage: 50 MG, 1 IN 1 D, ORAL
     Route: 048
     Dates: start: 20061013, end: 20061113
  2. DEXAMETHASONE TAB [Concomitant]
  3. ZOLEDRONIC ACID (ZOLEDRONIC ACID) (CAPSULES) [Concomitant]
  4. CONOFEN (CODEINE PHOSPHATE) (CAPSULES) [Concomitant]
  5. NORVASC [Concomitant]
  6. MOSCONTIN (MORPHINE SULFATE) [Concomitant]
  7. MAGNESIUM (MAGNESIUM) [Concomitant]
  8. LIVALO (ITAVASTATIN CALCIUM) [Concomitant]
  9. CALCIUM CARBONATE (CALCIUM CARBONATE) [Concomitant]
  10. ASPIRIN [Concomitant]
  11. MEGACE [Concomitant]
  12. ULTRACET (ULTRACET) [Concomitant]

REACTIONS (6)
  - HYPERGLYCAEMIA [None]
  - HYPEROSMOLAR STATE [None]
  - LOSS OF CONSCIOUSNESS [None]
  - NEUTROPENIA [None]
  - TACHYARRHYTHMIA [None]
  - WHITE BLOOD CELL COUNT DECREASED [None]
